FAERS Safety Report 12790918 (Version 2)
Quarter: 2016Q4

REPORT INFORMATION
  Report Type: Spontaneous
  Country: PL (occurrence: PL)
  Receive Date: 20160929
  Receipt Date: 20161026
  Transmission Date: 20170207
  Serious: Yes (Hospitalization, Other)
  Sender: FDA-Public Use
  Company Number: PL-SUN PHARMACEUTICAL INDUSTRIES LTD-2016R1-125029

PATIENT
  Age: 63 Year
  Sex: Female

DRUGS (2)
  1. LITHIUM. [Suspect]
     Active Substance: LITHIUM
     Dosage: 750 MG, DAILY
     Route: 065
     Dates: start: 1991
  2. LITHIUM. [Suspect]
     Active Substance: LITHIUM
     Indication: MANIA
     Dosage: 750 MG, DAILY
     Route: 065
     Dates: end: 1989

REACTIONS (6)
  - Therapeutic response decreased [Unknown]
  - Renal cyst [Unknown]
  - Nephropathy [Unknown]
  - Chronic kidney disease [Unknown]
  - Autoimmune thyroiditis [Unknown]
  - Condition aggravated [Recovering/Resolving]

NARRATIVE: CASE EVENT DATE: 2010
